FAERS Safety Report 10457923 (Version 2)
Quarter: 2014Q3

REPORT INFORMATION
  Report Type: Spontaneous
  Country: ES (occurrence: ES)
  Receive Date: 20140916
  Receipt Date: 20140916
  Transmission Date: 20150326
  Serious: Yes (Life-Threatening, Hospitalization)
  Sender: FDA-Public Use
  Company Number: ES-ABBVIE-12P-144-0957646-00

PATIENT
  Age: 79 Year
  Sex: Male

DRUGS (6)
  1. REGULATEN PLUS 600MG/12.5MG [Suspect]
     Active Substance: EPROSARTAN MESYLATE\HYDROCHLOROTHIAZIDE
     Indication: HYPERTENSION
     Dosage: FORM STRENGTH: 600MG/12.5MG
     Route: 048
     Dates: start: 2011, end: 20120610
  2. MANIDIPINE [Interacting]
     Active Substance: MANIDIPINE
     Indication: HYPERTENSION
     Route: 048
     Dates: start: 2010, end: 20120610
  3. NITROGLYCERINE [Interacting]
     Active Substance: NITROGLYCERIN
     Indication: ISCHAEMIC CARDIOMYOPATHY
     Route: 048
     Dates: start: 2010, end: 20120610
  4. METFORMINE [Interacting]
     Active Substance: METFORMIN HYDROCHLORIDE
     Indication: DIABETES MELLITUS
     Route: 048
     Dates: start: 2010, end: 20120610
  5. CARVEDILOL. [Interacting]
     Active Substance: CARVEDILOL
     Indication: ISCHAEMIC CARDIOMYOPATHY
     Route: 048
     Dates: start: 2010, end: 20120610
  6. ACETYLSALICYLIC ACID [Interacting]
     Active Substance: ASPIRIN
     Indication: ISCHAEMIC CARDIOMYOPATHY
     Route: 048
     Dates: start: 2011, end: 20120610

REACTIONS (7)
  - Hyperkalaemia [Recovered/Resolved]
  - Lactic acidosis [Recovered/Resolved]
  - Haemofiltration [None]
  - Metabolic acidosis [None]
  - Renal failure acute [Recovered/Resolved]
  - General physical health deterioration [None]
  - Depressed level of consciousness [None]

NARRATIVE: CASE EVENT DATE: 20120611
